FAERS Safety Report 12752236 (Version 5)
Quarter: 2019Q3

REPORT INFORMATION
  Report Type: Report from Study
  Country: US (occurrence: US)
  Receive Date: 20160915
  Receipt Date: 20190909
  Transmission Date: 20191004
  Serious: Yes (Hospitalization, Other)
  Sender: FDA-Public Use
  Company Number: US-ASTELLAS-2016US027481

PATIENT
  Age: 80 Year
  Sex: Male

DRUGS (2)
  1. ENZALUTAMIDE [Suspect]
     Active Substance: ENZALUTAMIDE
     Route: 048
  2. ENZALUTAMIDE [Suspect]
     Active Substance: ENZALUTAMIDE
     Indication: PROSTATE CANCER
     Route: 048
     Dates: start: 201604

REACTIONS (4)
  - Transient ischaemic attack [Unknown]
  - Rash pruritic [Recovered/Resolved]
  - Blood pressure increased [Unknown]
  - Accidental overdose [Unknown]

NARRATIVE: CASE EVENT DATE: 201607
